FAERS Safety Report 24987666 (Version 12)
Quarter: 2025Q4

REPORT INFORMATION
  Report Type: Spontaneous
  Country: EU (occurrence: EU)
  Receive Date: 20250219
  Receipt Date: 20251222
  Transmission Date: 20260117
  Serious: Yes (Death, Hospitalization, Other)
  Sender: SANOFI AVENTIS
  Company Number: EU-BIOVITRUM-2025-FR-002181

PATIENT
  Age: 87 Year
  Sex: Male
  Weight: 87 kg

DRUGS (8)
  1. ALTUVIIIO [Suspect]
     Active Substance: EFANESOCTOCOG ALFA
     Indication: Factor VIII deficiency
     Dosage: 4000 IU, QW
     Route: 042
     Dates: start: 20241015, end: 20250128
  2. ALTUVIIIO [Suspect]
     Active Substance: EFANESOCTOCOG ALFA
     Dosage: 50 IU/KG, QW
     Route: 042
  3. ELOCTA [Suspect]
     Active Substance: EFMOROCTOCOG ALFA
     Indication: Factor VIII deficiency
     Dosage: UNK UNK, BID
     Route: 065
     Dates: start: 20250130
  4. ELOCTA [Suspect]
     Active Substance: EFMOROCTOCOG ALFA
     Indication: Factor VIII deficiency
     Dosage: UNK UNK, BID
     Route: 065
     Dates: start: 20250130
  5. ELOCTA [Suspect]
     Active Substance: EFMOROCTOCOG ALFA
     Dosage: 2 TO 3 INJECTIONS PER WEEK, 3000 IU PER INJECTION
     Route: 065
  6. ELOCTA [Suspect]
     Active Substance: EFMOROCTOCOG ALFA
     Dosage: 2 TO 3 INJECTIONS PER WEEK, 3000 IU PER INJECTION
     Route: 065
  7. ELIQUIS [Suspect]
     Active Substance: APIXABAN
     Indication: Atrial fibrillation
     Dosage: 5 MG, 1X
     Route: 048
     Dates: start: 202311
  8. HEMLIBRA [Concomitant]
     Active Substance: EMICIZUMAB-KXWH
     Indication: Factor VIII deficiency
     Dosage: 3 MG/KG, 1X
     Route: 042
     Dates: start: 20241010, end: 20241010

REACTIONS (9)
  - Death [Fatal]
  - Abdominal wall haematoma [Not Recovered/Not Resolved]
  - Cardiac disorder [Unknown]
  - Condition aggravated [Not Recovered/Not Resolved]
  - Spontaneous haematoma [Unknown]
  - Haematoma evacuation [Not Recovered/Not Resolved]
  - Condition aggravated [Unknown]
  - Haematoma [Unknown]
  - Poor venous access [Unknown]

NARRATIVE: CASE EVENT DATE: 20250101
